FAERS Safety Report 19889609 (Version 4)
Quarter: 2022Q2

REPORT INFORMATION
  Report Type: Spontaneous
  Country: BR (occurrence: BR)
  Receive Date: 20210927
  Receipt Date: 20220519
  Transmission Date: 20220721
  Serious: Yes (Hospitalization, Other)
  Sender: FDA-Public Use
  Company Number: BR-KYOWAKIRIN-2021BKK016368

PATIENT

DRUGS (2)
  1. CRYSVITA [Suspect]
     Active Substance: BUROSUMAB-TWZA
     Indication: Hereditary hypophosphataemic rickets
     Dosage: 20 MG,1 IN 2 WK
     Route: 058
     Dates: start: 20210912
  2. CRYSVITA [Suspect]
     Active Substance: BUROSUMAB-TWZA
     Dosage: 20 MG,1 IN 2 WK
     Route: 058
     Dates: start: 20200120

REACTIONS (5)
  - Intussusception [Recovered/Resolved with Sequelae]
  - Abdominal distension [Unknown]
  - Gastrointestinal hypomotility [Unknown]
  - Intestinal dilatation [Unknown]
  - Cholelithiasis [Recovered/Resolved]

NARRATIVE: CASE EVENT DATE: 20210907
